FAERS Safety Report 12699473 (Version 1)
Quarter: 2016Q3

REPORT INFORMATION
  Report Type: Spontaneous
  Country: US (occurrence: US)
  Receive Date: 20160830
  Receipt Date: 20160830
  Transmission Date: 20161109
  Serious: Yes (Hospitalization)
  Sender: FDA-Public Use
  Company Number: US-APOPHARMA-2014AP003504

PATIENT
  Age: 53 Year
  Sex: Male
  Weight: 90.7 kg

DRUGS (5)
  1. FERRIPROX [Suspect]
     Active Substance: DEFERIPRONE
     Indication: SICKLE CELL ANAEMIA
     Dosage: 66 MG/KG, UNK
     Route: 048
     Dates: start: 20130806, end: 20140617
  2. HYDROXYUREA. [Concomitant]
     Active Substance: HYDROXYUREA
  3. DILAUDID [Concomitant]
     Active Substance: HYDROMORPHONE HYDROCHLORIDE
  4. SENNA                              /00142201/ [Concomitant]
     Active Substance: SENNA LEAF
  5. HYDROCODONE [Concomitant]
     Active Substance: HYDROCODONE

REACTIONS (2)
  - Device related infection [Recovered/Resolved]
  - Constipation [Recovered/Resolved]

NARRATIVE: CASE EVENT DATE: 20140617
